FAERS Safety Report 13256377 (Version 1)
Quarter: 2017Q1

REPORT INFORMATION
  Report Type: Spontaneous
  Country: JP (occurrence: JP)
  Receive Date: 20170221
  Receipt Date: 20170221
  Transmission Date: 20170428
  Serious: Yes (Other)
  Sender: FDA-Public Use
  Company Number: JP-PFIZER INC-2017071426

PATIENT
  Age: 79 Year
  Sex: Male
  Weight: 51.2 kg

DRUGS (9)
  1. FEBURIC [Concomitant]
     Active Substance: FEBUXOSTAT
     Dosage: 20 MG, DAILY
     Route: 048
  2. PICILLIBACTA [Concomitant]
     Active Substance: AMPICILLIN SODIUM\SULBACTAM SODIUM
     Indication: BACTERAEMIA
     Dosage: 4.5 G, DAILY
     Route: 042
     Dates: start: 20170111
  3. FUROSEMIDE. [Concomitant]
     Active Substance: FUROSEMIDE
     Dosage: 20 MG, DAILY
  4. IRSOGLADINE MALEATE [Concomitant]
     Active Substance: IRSOGLADINE MALEATE
     Dosage: 4 MG, DAILY
     Route: 048
  5. TAMSULOSIN [Concomitant]
     Active Substance: TAMSULOSIN
     Dosage: 0.2 MG, DAILY
     Route: 048
  6. ZYVOX [Suspect]
     Active Substance: LINEZOLID
     Indication: STAPHYLOCOCCAL BACTERAEMIA
     Dosage: 600 MG, 2X/DAY
     Route: 048
     Dates: start: 20170114, end: 20170117
  7. ZYVOX [Suspect]
     Active Substance: LINEZOLID
     Indication: STAPHYLOCOCCAL BACTERAEMIA
     Dosage: 600 MG, 2X/DAY
     Route: 041
     Dates: start: 20170111, end: 20170113
  8. PREDONINE [Concomitant]
     Active Substance: PREDNISOLONE
     Dosage: 7.5 MG, DAILY
     Route: 048
  9. BENIDIPINE [Concomitant]
     Active Substance: BENIDIPINE
     Dosage: 2 MG, DAILY
     Route: 048

REACTIONS (4)
  - Dyspnoea exertional [Recovering/Resolving]
  - Ascites [Recovering/Resolving]
  - Pleural effusion [Recovering/Resolving]
  - Dysuria [Recovering/Resolving]

NARRATIVE: CASE EVENT DATE: 20170113
